FAERS Safety Report 5457227-X (Version None)
Quarter: 2007Q3

REPORT INFORMATION
  Report Type: 
  Country: None (occurrence: None)
  Receive Date: 20070918
  Receipt Date: 20070906
  Transmission Date: 20080115
  Serious: Yes (Hospitalization, Other)
  Sender: FDA-Public Use
  Company Number: US-PFIZER INC-2007046800

PATIENT
  Sex: Female
  Weight: 75.8 kg

DRUGS (1)
  1. BEXTRA [Suspect]
     Indication: ARTHRITIS
     Route: 048
     Dates: start: 20040123, end: 20040701

REACTIONS (6)
  - AORTIC OCCLUSION [None]
  - GANGRENE [None]
  - PERIPHERAL VASCULAR DISORDER [None]
  - PULMONARY EMBOLISM [None]
  - RENAL DISORDER [None]
  - STENT OCCLUSION [None]
